FAERS Safety Report 15832383 (Version 1)
Quarter: 2018Q4

REPORT INFORMATION
  Report Type: Spontaneous
  Country: US (occurrence: US)
  Receive Date: 20181219
  Receipt Date: 20181219
  Transmission Date: 20190205
  Serious: Yes (Hospitalization)
  Sender: FDA-Public Use
  Company Number: None

PATIENT
  Age: 77 Year
  Sex: Female

DRUGS (2)
  1. CAPECITABINE 500MG [Suspect]
     Active Substance: CAPECITABINE
  2. CAPECITABINE 150MG [Suspect]
     Active Substance: CAPECITABINE
     Indication: COLON CANCER
     Dosage: ?          QUANTITY:84 DF DOSAGE FORM;OTHER FREQUENCY:3 TABS 2XDAY/D1-14;?
     Route: 048
     Dates: start: 20181015, end: 201811

REACTIONS (1)
  - Palmar-plantar erythrodysaesthesia syndrome [None]

NARRATIVE: CASE EVENT DATE: 20181207
